FAERS Safety Report 24885250 (Version 1)
Quarter: 2025Q1

REPORT INFORMATION
  Report Type: Spontaneous
  Country: US (occurrence: US)
  Receive Date: 20250124
  Receipt Date: 20250124
  Transmission Date: 20250409
  Serious: No
  Sender: INSUD PHARMA
  Company Number: US-INSUD PHARMA-2501US00230

PATIENT

DRUGS (1)
  1. ESTARYLLA [Suspect]
     Active Substance: ETHINYL ESTRADIOL\NORGESTIMATE
     Indication: Contraception
     Route: 048
     Dates: start: 20241222, end: 20250112

REACTIONS (6)
  - Anaemia [Recovering/Resolving]
  - Muscle twitching [Recovering/Resolving]
  - Joint stiffness [Recovering/Resolving]
  - Arthralgia [Recovering/Resolving]
  - Abdominal distension [Recovering/Resolving]
  - Condition aggravated [Recovering/Resolving]
